FAERS Safety Report 16081696 (Version 1)
Quarter: 2019Q1

REPORT INFORMATION
  Report Type: Spontaneous
  Country: US (occurrence: US)
  Receive Date: 20190316
  Receipt Date: 20190316
  Transmission Date: 20190418
  Serious: No
  Sender: FDA-Public Use
  Company Number: US-009507513-1903USA002133

PATIENT

DRUGS (1)
  1. ZETIA [Suspect]
     Active Substance: EZETIMIBE
     Dosage: UNK

REACTIONS (1)
  - Drug hypersensitivity [Unknown]
